FAERS Safety Report 7069439-2 (Version None)
Quarter: 2010Q4

REPORT INFORMATION
  Report Type: 
  Country: None (occurrence: None)
  Receive Date: 20101028
  Receipt Date: 20100927
  Transmission Date: 20110411
  Serious: No
  Sender: FDA-Public Use
  Company Number: US-BAYER-201035160NA

PATIENT
  Age: 22 Year
  Sex: Male

DRUGS (1)
  1. ULTRAVIST 150 [Suspect]
     Indication: COMPUTERISED TOMOGRAM ABDOMEN
     Dosage: TOTAL DAILY DOSE: 100 MG
     Route: 042
     Dates: start: 20100927, end: 20100927

REACTIONS (3)
  - AGITATION [None]
  - NASAL CONGESTION [None]
  - SNEEZING [None]
